FAERS Safety Report 20496539 (Version 2)
Quarter: 2022Q1

REPORT INFORMATION
  Report Type: Spontaneous
  Country: US (occurrence: None)
  Receive Date: 20220221
  Receipt Date: 20220331
  Transmission Date: 20220424
  Serious: Yes (Other)
  Sender: FDA-Public Use
  Company Number: 2022A074548

PATIENT
  Age: 27165 Day
  Sex: Female
  Weight: 83.9 kg

DRUGS (3)
  1. BUDESONIDE\FORMOTEROL\GLYCOPYRRONIUM [Suspect]
     Active Substance: BUDESONIDE\FORMOTEROL\GLYCOPYRRONIUM
     Indication: Chronic obstructive pulmonary disease
     Dosage: 160/9/4.8MCG 2 PUFFS
     Route: 055
     Dates: start: 20220214
  2. SYMBICORT [Suspect]
     Active Substance: BUDESONIDE\FORMOTEROL FUMARATE DIHYDRATE
     Indication: Chronic obstructive pulmonary disease
     Dosage: 160/4.5MCG 2 PUFFS
     Route: 055
     Dates: start: 2006, end: 20220214
  3. DALIRESP [Suspect]
     Active Substance: ROFLUMILAST
     Indication: Chronic obstructive pulmonary disease
     Route: 048
     Dates: start: 2011

REACTIONS (13)
  - Chronic obstructive pulmonary disease [Not Recovered/Not Resolved]
  - Malaise [Not Recovered/Not Resolved]
  - Illness [Not Recovered/Not Resolved]
  - COVID-19 [Unknown]
  - Cardiac disorder [Unknown]
  - Dyspnoea [Unknown]
  - Dyspnoea exertional [Not Recovered/Not Resolved]
  - Heart rate increased [Recovered/Resolved]
  - Body height decreased [Unknown]
  - Osteoporosis [Not Recovered/Not Resolved]
  - Thyroid disorder [Unknown]
  - Palpitations [Unknown]
  - Lung disorder [Unknown]

NARRATIVE: CASE EVENT DATE: 20220119
